FAERS Safety Report 4591876-6 (Version None)
Quarter: 2005Q1

REPORT INFORMATION
  Report Type: 
  Country: None (occurrence: None)
  Receive Date: 20050222
  Receipt Date: 20050207
  Transmission Date: 20050727
  Serious: Yes (Other)
  Sender: FDA-Public Use
  Company Number: HQWYE953518MAR04

PATIENT
  Sex: Female

DRUGS (3)
  1. EFFEXOR [Suspect]
     Dosage: 75 MG, ORAL
     Route: 048
     Dates: start: 20000201
  2. EFFEXOR XR [Suspect]
     Dosage: SEE IMAGE
     Dates: start: 20020815, end: 20030630
  3. EFFEXOR XR [Suspect]
     Dosage: SEE IMAGE
     Dates: start: 20030701

REACTIONS (16)
  - ABNORMAL BEHAVIOUR [None]
  - APATHY [None]
  - BLOOD CHOLESTEROL INCREASED [None]
  - BRONCHITIS [None]
  - DERMATITIS CONTACT [None]
  - FEELING ABNORMAL [None]
  - LOSS OF EMPLOYMENT [None]
  - LOW DENSITY LIPOPROTEIN INCREASED [None]
  - PHARYNGITIS [None]
  - PHARYNGITIS STREPTOCOCCAL [None]
  - SELF ESTEEM DECREASED [None]
  - SINUSITIS [None]
  - TENSION HEADACHE [None]
  - URINARY TRACT INFECTION [None]
  - VAGINITIS BACTERIAL [None]
  - VIRAL INFECTION [None]
